FAERS Safety Report 6861656-7 (Version None)
Quarter: 2010Q3

REPORT INFORMATION
  Report Type: 
  Country: None (occurrence: None)
  Receive Date: 20100721
  Receipt Date: 20100708
  Transmission Date: 20110219
  Serious: No
  Sender: FDA-Public Use
  Company Number: US-BIOGENIDEC-2010BI021655

PATIENT
  Age: 60 Year
  Sex: Male

DRUGS (2)
  1. TYSABRI [Suspect]
     Indication: MULTIPLE SCLEROSIS
     Route: 042
     Dates: start: 20080214, end: 20081201
  2. TYSABRI [Suspect]
     Route: 042
     Dates: start: 20090505

REACTIONS (2)
  - CULTURE URINE POSITIVE [None]
  - URINARY TRACT INFECTION [None]
